FAERS Safety Report 13574909 (Version 3)
Quarter: 2017Q2

REPORT INFORMATION
  Report Type: Spontaneous
  Country: NL (occurrence: NL)
  Receive Date: 20170523
  Receipt Date: 20170610
  Transmission Date: 20170830
  Serious: Yes (Other)
  Sender: FDA-Public Use
  Company Number: NL-009507513-1705NLD011257

PATIENT
  Age: 5 Year
  Sex: Female
  Weight: 17.6 kg

DRUGS (1)
  1. DEXAMETHASONE. [Suspect]
     Active Substance: DEXAMETHASONE
     Indication: DERMATITIS ATOPIC
     Dosage: FULL BODY APPLICATION WITH HERBAL OINTMENT, THREE TIMES DAILY
     Route: 061
     Dates: start: 2015

REACTIONS (2)
  - Cushing^s syndrome [Recovered/Resolved]
  - Product use issue [Unknown]

NARRATIVE: CASE EVENT DATE: 2015
